FAERS Safety Report 4445269-2 (Version None)
Quarter: 2004Q3

REPORT INFORMATION
  Report Type: 
  Country: None (occurrence: None)
  Receive Date: 20040907
  Receipt Date: 20040820
  Transmission Date: 20050211
  Serious: Yes (Disabling)
  Sender: FDA-Public Use
  Company Number: 04P-151-0271540-00

PATIENT
  Age: 58 Year
  Sex: Male

DRUGS (8)
  1. KLACID (BIAXIN) (CLARITHROMYCIN) (CLARYTHROMYCIN) [Suspect]
     Indication: LUNG INFECTION
     Dosage: 500 MG, 3 IN 1 D, PER ORAL
     Route: 048
     Dates: start: 20040413, end: 20040418
  2. DEPAKENE [Suspect]
     Indication: EPILEPSY
     Dosage: PER ORAL
     Route: 048
     Dates: end: 20040413
  3. MEROPENEM [Suspect]
     Indication: LUNG INFECTION
     Dosage: INTRAVENOUS
     Route: 042
     Dates: start: 20040413, end: 20040418
  4. PARACETAMOL [Suspect]
     Indication: PYREXIA
     Dosage: 4 GM, 1 IN 1 D, PER ORAL
     Route: 048
     Dates: start: 20040413, end: 20040422
  5. LEVETIRACETAM [Suspect]
     Indication: EPILEPSY
     Dosage: 500 MG, 2 IN 1 D, PER ORAL
     Route: 048
     Dates: start: 20040413
  6. LEVOFLOXACIN [Concomitant]
  7. ACETAZOLAMIDE [Concomitant]
  8. FILGRASTIM [Concomitant]

REACTIONS (7)
  - AGRANULOCYTOSIS [None]
  - ANAEMIA [None]
  - CONDITION AGGRAVATED [None]
  - LEGIONELLA SEROLOGY POSITIVE [None]
  - PANCYTOPENIA [None]
  - RESPIRATORY FAILURE [None]
  - SEPSIS [None]
